FAERS Safety Report 13068704 (Version 1)
Quarter: 2016Q4

REPORT INFORMATION
  Report Type: Spontaneous
  Country: US (occurrence: US)
  Receive Date: 20161228
  Receipt Date: 20161228
  Transmission Date: 20170207
  Serious: No
  Sender: FDA-Public Use
  Company Number: US-MYLANLABS-2016M1030126

PATIENT

DRUGS (3)
  1. ADDERALL [Concomitant]
     Active Substance: AMPHETAMINE ASPARTATE\AMPHETAMINE SULFATE\DEXTROAMPHETAMINE SACCHARATE\DEXTROAMPHETAMINE SULFATE
     Dosage: 20 MG, QD
  2. TRAMADOL. [Suspect]
     Active Substance: TRAMADOL
     Dosage: 50 MG, QD; UP TO 4 TIMES PER DAY
  3. ALPRAZOLAM. [Concomitant]
     Active Substance: ALPRAZOLAM
     Dosage: 0.5 MG, HS

REACTIONS (5)
  - Dyspepsia [Unknown]
  - Crying [Unknown]
  - Agitation [Unknown]
  - Sleep disorder [Unknown]
  - Paraesthesia [Unknown]
